FAERS Safety Report 24370813 (Version 2)
Quarter: 2024Q4

REPORT INFORMATION
  Report Type: Other
  Country: GB (occurrence: GB)
  Receive Date: 20240927
  Receipt Date: 20241018
  Transmission Date: 20250115
  Serious: Yes (Other)
  Sender: LUPIN
  Company Number: None

PATIENT

DRUGS (1)
  1. MEMANTINE [Suspect]
     Active Substance: MEMANTINE
     Indication: Product used for unknown indication
     Dosage: UNK
     Route: 065

REACTIONS (4)
  - Presyncope [Recovered/Resolved]
  - Dizziness [Recovered/Resolved]
  - Muscular weakness [Recovered/Resolved]
  - Withdrawal syndrome [Recovered/Resolved]

NARRATIVE: CASE EVENT DATE: 20240913
